FAERS Safety Report 6110208-5 (Version None)
Quarter: 2009Q1

REPORT INFORMATION
  Report Type: 
  Country: None (occurrence: None)
  Receive Date: 20090309
  Receipt Date: 20090309
  Transmission Date: 20090719
  Serious: Yes (Life-Threatening, Hospitalization)
  Sender: FDA-Public Use
  Company Number: None

PATIENT
  Sex: Male
  Weight: 71 kg

DRUGS (23)
  1. SIROLIMUS [Suspect]
     Indication: IMMUNOSUPPRESSION
     Dosage: 1MG QD PO
     Route: 048
     Dates: start: 20040401, end: 20061211
  2. SIROLIMUS [Suspect]
     Indication: LUNG TRANSPLANT
     Dosage: 1MG QD PO
     Route: 048
     Dates: start: 20040401, end: 20061211
  3. PROGRAF [Concomitant]
  4. PREDNISONE TAB [Concomitant]
  5. BACTRIM [Concomitant]
  6. NYSTATIN [Concomitant]
  7. INSULIN NPH [Concomitant]
  8. FERROUS SULFATE TAB [Concomitant]
  9. COLACE [Concomitant]
  10. FOLIC ACID [Concomitant]
  11. LASIX [Concomitant]
  12. ZINC [Concomitant]
  13. MGOXIDE [Concomitant]
  14. REGULAR INSULIN [Concomitant]
  15. LOPRESSOR [Concomitant]
  16. CAL W VIT D [Concomitant]
  17. M.V.I. [Concomitant]
  18. COMBIVENT [Concomitant]
  19. MICRO-K [Concomitant]
  20. CARAFATE [Concomitant]
  21. VICODIN [Concomitant]
  22. TUMS [Concomitant]
  23. COUMADIN [Concomitant]

REACTIONS (1)
  - DEEP VEIN THROMBOSIS [None]
